FAERS Safety Report 5899665-7 (Version None)
Quarter: 2008Q3

REPORT INFORMATION
  Report Type: 
  Country: None (occurrence: None)
  Receive Date: 20080926
  Receipt Date: 20080922
  Transmission Date: 20090109
  Serious: Yes (Other)
  Sender: FDA-Public Use
  Company Number: US-TEVA-177882USA

PATIENT
  Sex: Male

DRUGS (1)
  1. AMOXICILLIN AND CLAVULANATE POTASSIUM [Suspect]
     Indication: CYSTITIS
     Dosage: 500MG/125MG
     Route: 048
     Dates: start: 20080801

REACTIONS (1)
  - DEPRESSION SUICIDAL [None]
